FAERS Safety Report 5342136-7 (Version None)
Quarter: 2007Q2

REPORT INFORMATION
  Report Type: 
  Country: None (occurrence: None)
  Receive Date: 20070601
  Receipt Date: 20070530
  Transmission Date: 20071010
  Serious: Yes (Hospitalization)
  Sender: FDA-Public Use
  Company Number: CH-BRISTOL-MYERS SQUIBB COMPANY-13799333

PATIENT
  Sex: Female

DRUGS (1)
  1. KENACORT [Suspect]
     Route: 030
     Dates: start: 20060526

REACTIONS (1)
  - PLACENTAL CHORIOANGIOMA [None]
